FAERS Safety Report 4943515-X (Version None)
Quarter: 2006Q1

REPORT INFORMATION
  Report Type: 
  Country: None (occurrence: None)
  Receive Date: 20060314
  Receipt Date: 20060303
  Transmission Date: 20060701
  Serious: Yes (Other)
  Sender: FDA-Public Use
  Company Number: JP-JNJFOC-20051101653

PATIENT
  Sex: Male

DRUGS (2)
  1. RISPERDAL [Suspect]
  2. LORAZEPAM [Suspect]

REACTIONS (6)
  - DRUG EXPOSURE DURING PREGNANCY [None]
  - DRUG WITHDRAWAL SYNDROME NEONATAL [None]
  - FEEDING DISORDER NEONATAL [None]
  - IRRITABILITY [None]
  - POOR SUCKING REFLEX [None]
  - URINE OUTPUT DECREASED [None]
